FAERS Safety Report 20988824 (Version 1)
Quarter: 2022Q2

REPORT INFORMATION
  Report Type: Spontaneous
  Country: BR (occurrence: BR)
  Receive Date: 20220621
  Receipt Date: 20220621
  Transmission Date: 20220721
  Serious: Yes (Other)
  Sender: FDA-Public Use
  Company Number: BR-ABBVIE-22K-020-4442452-00

PATIENT
  Age: 54 Year
  Sex: Female
  Weight: 70 kg

DRUGS (3)
  1. ANDROGEL [Suspect]
     Active Substance: TESTOSTERONE
     Indication: Blood testosterone decreased
     Dosage: 1 SACHET PER DAY
     Route: 062
     Dates: start: 202204, end: 202205
  2. PURAN [Concomitant]
     Active Substance: LEVOTHYROXINE SODIUM
     Indication: Thyroid disorder
     Dosage: 1 TABLET AT MORNING (1 IN 1 D)
     Dates: start: 2022
  3. OLMESARTAN MEDOXOMIL [Concomitant]
     Active Substance: OLMESARTAN MEDOXOMIL
     Indication: Hypertension
     Dosage: 1 TABLET AT NIGHT (1 IN 1 D)
     Dates: start: 2022

REACTIONS (10)
  - Menstrual disorder [Unknown]
  - Skin wound [Not Recovered/Not Resolved]
  - Genital disorder [Unknown]
  - Abdominal pain [Unknown]
  - Purulence [Not Recovered/Not Resolved]
  - Skin fissures [Not Recovered/Not Resolved]
  - Purulence [Not Recovered/Not Resolved]
  - Rash [Not Recovered/Not Resolved]
  - Hypertrichosis [Not Recovered/Not Resolved]
  - Product use issue [Unknown]

NARRATIVE: CASE EVENT DATE: 20220101
